FAERS Safety Report 26189605 (Version 1)
Quarter: 2025Q4

REPORT INFORMATION
  Report Type: Spontaneous
  Country: US (occurrence: US)
  Receive Date: 20251223
  Receipt Date: 20251223
  Transmission Date: 20260117
  Serious: No
  Sender: Kenvue
  Company Number: US-KENVUE-20251110527

PATIENT
  Sex: Female

DRUGS (1)
  1. SUDAFED NASAL DECONGESTANT MAXIMUM STRENGTH [Suspect]
     Active Substance: PSEUDOEPHEDRINE HYDROCHLORIDE
     Indication: Ear discomfort
     Dosage: 2 DOSAGE FORM, ONCE A DAY. PRODUCT START DATE: APPROXIMATELY 30 YEARS
     Route: 065

REACTIONS (5)
  - Ear dryness [Recovering/Resolving]
  - Nervousness [Recovering/Resolving]
  - Product storage error [Unknown]
  - Product use in unapproved indication [Unknown]
  - Product packaging difficult to open [Unknown]
